FAERS Safety Report 5242446-8 (Version None)
Quarter: 2007Q1

REPORT INFORMATION
  Report Type: 
  Country: None (occurrence: None)
  Receive Date: 20070214
  Receipt Date: 20070203
  Transmission Date: 20070707
  Serious: Yes (Other)
  Sender: FDA-Public Use
  Company Number: 15640

PATIENT
  Age: 47 Year
  Sex: Male

DRUGS (2)
  1. MORPHINE [Suspect]
     Indication: BACK PAIN
     Dosage: 32 MG QD IT
     Route: 037
  2. IMPLANTED DRUG DELIVERY SYSTEM [Suspect]
     Indication: BACK PAIN

REACTIONS (6)
  - GRANULOMA [None]
  - INTRASPINAL ABSCESS [None]
  - MEDICAL DEVICE COMPLICATION [None]
  - PARAPLEGIA [None]
  - SPINAL CORD COMPRESSION [None]
  - STREPTOCOCCAL ABSCESS [None]
